FAERS Safety Report 4273709-0 (Version None)
Quarter: 2004Q1

REPORT INFORMATION
  Report Type: 
  Country: None (occurrence: None)
  Receive Date: 20040119
  Receipt Date: 20040112
  Transmission Date: 20041129
  Serious: Yes (Life-Threatening, Hospitalization)
  Sender: FDA-Public Use
  Company Number: AT-ROCHE-355575

PATIENT
  Age: 74 Year
  Sex: Male
  Weight: 89 kg

DRUGS (10)
  1. DACLIZUMAB [Suspect]
     Route: 042
     Dates: start: 20031231, end: 20031231
  2. MYCOPHENOLATE MOFETIL [Suspect]
     Route: 048
     Dates: start: 20031231, end: 20040102
  3. TACROLIMUS [Suspect]
     Route: 048
     Dates: start: 20031231, end: 20040101
  4. URBASON [Suspect]
     Route: 042
     Dates: start: 20040101, end: 20040101
  5. PANTOLOC [Concomitant]
     Route: 048
     Dates: start: 20040101
  6. LEXOTANIL [Concomitant]
     Route: 048
     Dates: start: 20040101, end: 20040101
  7. BELOC [Concomitant]
     Route: 048
     Dates: start: 20040101, end: 20040101
  8. MUCOBENE [Concomitant]
     Route: 048
     Dates: start: 20040101
  9. THROMBO ASS [Concomitant]
     Route: 048
     Dates: start: 20040101
  10. FRAGMIN [Concomitant]
     Route: 058
     Dates: start: 20040101

REACTIONS (2)
  - ESCHERICHIA INFECTION [None]
  - SEPSIS [None]
